FAERS Safety Report 4502199-5 (Version None)
Quarter: 2004Q4

REPORT INFORMATION
  Report Type: 
  Country: None (occurrence: None)
  Receive Date: 20041109
  Receipt Date: 20041020
  Transmission Date: 20050328
  Serious: Yes (Other)
  Sender: FDA-Public Use
  Company Number: JP_041004981

PATIENT
  Age: 65 Year

DRUGS (6)
  1. ONCOVIN [Suspect]
     Indication: NON-HODGKIN'S LYMPHOMA
  2. CYCLOPHOSPHAMIDE [Concomitant]
  3. DOXORUBICIN [Concomitant]
  4. PREDNISOLONE [Concomitant]
  5. ETOPOSIDE [Concomitant]
  6. GRANULOCYTE COLONY STIMULATING FACTOR [Concomitant]

REACTIONS (3)
  - FEBRILE NEUTROPENIA [None]
  - PLATELET COUNT DECREASED [None]
  - STEM CELL TRANSPLANT [None]
